FAERS Safety Report 8543821-6 (Version None)
Quarter: 2012Q3

REPORT INFORMATION
  Report Type: 
  Country: None (occurrence: None)
  Receive Date: 20120717
  Receipt Date: 20120630
  Transmission Date: 20120928
  Serious: Yes (Hospitalization, Other)
  Sender: FDA-Public Use
  Company Number: JPI-P-019948

PATIENT
  Age: 57 Year
  Sex: Female

DRUGS (2)
  1. XYREM [Suspect]
     Indication: NARCOLEPSY
     Dosage: 4.5 GM (2.25 GM, 2 IN 1 D), ORAL; ORAL; 6 GM (3 MG, 2 IN 1 D), ORAL
     Route: 048
     Dates: start: 20081010
  2. XYREM [Suspect]
     Indication: NARCOLEPSY
     Dosage: 4.5 GM (2.25 GM, 2 IN 1 D), ORAL; ORAL; 6 GM (3 MG, 2 IN 1 D), ORAL
     Route: 048
     Dates: start: 20090604

REACTIONS (6)
  - FALL [None]
  - DRUG DOSE OMISSION [None]
  - DIZZINESS [None]
  - CYST [None]
  - RETCHING [None]
  - LUNG NEOPLASM MALIGNANT [None]
